FAERS Safety Report 14134025 (Version 1)
Quarter: 2017Q4

REPORT INFORMATION
  Report Type: Report from Study
  Country: US (occurrence: US)
  Receive Date: 20171027
  Receipt Date: 20171027
  Transmission Date: 20180321
  Serious: No
  Sender: FDA-Public Use
  Company Number: US-AMGEN-USASL2017161665

PATIENT
  Age: 58 Year
  Sex: Female

DRUGS (3)
  1. ENBREL [Suspect]
     Active Substance: ETANERCEPT
     Indication: PSORIASIS
     Dosage: 50 MG, 2 TIMES/WK
     Route: 065
     Dates: start: 20171011
  2. DOXYCYCLINE. [Suspect]
     Active Substance: DOXYCYCLINE
     Indication: INJECTION SITE ERYTHEMA
     Dosage: UNK
     Route: 065
     Dates: start: 201710
  3. DOXYCYCLINE. [Suspect]
     Active Substance: DOXYCYCLINE
     Indication: INJECTION SITE SWELLING

REACTIONS (6)
  - Genital erythema [Not Recovered/Not Resolved]
  - Injection site swelling [Unknown]
  - Skin haemorrhage [Not Recovered/Not Resolved]
  - Injection site erythema [Unknown]
  - Vomiting [Unknown]
  - Erythema [Not Recovered/Not Resolved]

NARRATIVE: CASE EVENT DATE: 201710
